FAERS Safety Report 9421527 (Version 2)
Quarter: 2013Q4

REPORT INFORMATION
  Report Type: Report from Study
  Country: FR (occurrence: FR)
  Receive Date: 20130726
  Receipt Date: 20131113
  Transmission Date: 20140711
  Serious: Yes (Death, Hospitalization)
  Sender: FDA-Public Use
  Company Number: FR-ROCHE-1252547

PATIENT
  Age: 61 Year
  Sex: Male

DRUGS (3)
  1. MYCOPHENOLATE MOFETIL [Suspect]
     Indication: RENAL TRANSPLANT
     Route: 065
     Dates: start: 20050915
  2. BELATACEPT [Suspect]
     Indication: RENAL TRANSPLANT
     Route: 065
     Dates: start: 20050915
  3. CORTANCYL [Suspect]
     Indication: RENAL TRANSPLANT
     Route: 065
     Dates: start: 20050926

REACTIONS (2)
  - Sepsis [Fatal]
  - Arthritis [Not Recovered/Not Resolved]
